FAERS Safety Report 7042370-4 (Version None)
Quarter: 2010Q4

REPORT INFORMATION
  Report Type: 
  Country: None (occurrence: None)
  Receive Date: 20101013
  Receipt Date: 20100816
  Transmission Date: 20110411
  Serious: No
  Sender: FDA-Public Use
  Company Number: US-ASTRAZENECA-2010SE38381

PATIENT
  Sex: Male
  Weight: 59 kg

DRUGS (7)
  1. SYMBICORT [Suspect]
     Indication: ASTHMA
     Dosage: 640 MCG DAILY, 2 PUFFS TWICE DAILY
     Route: 055
     Dates: start: 20080101, end: 20100101
  2. SYMBICORT [Suspect]
     Indication: CHRONIC OBSTRUCTIVE PULMONARY DISEASE
     Dosage: 640 MCG DAILY, 2 PUFFS TWICE DAILY
     Route: 055
     Dates: start: 20080101, end: 20100101
  3. SYMBICORT [Suspect]
     Dosage: 320 MCG DAILY, 1 PUFFS TWICE DAILY
     Route: 055
     Dates: start: 20100101
  4. SYMBICORT [Suspect]
     Dosage: 320 MCG DAILY, 1 PUFFS TWICE DAILY
     Route: 055
     Dates: start: 20100101
  5. SINGULAIR [Concomitant]
  6. LISINOPRIL [Concomitant]
  7. ASPIRIN [Concomitant]

REACTIONS (5)
  - CHRONIC OBSTRUCTIVE PULMONARY DISEASE [None]
  - DEAFNESS UNILATERAL [None]
  - DRUG INEFFECTIVE [None]
  - DYSPHONIA [None]
  - EAR INFECTION VIRAL [None]
